FAERS Safety Report 5489072-3 (Version None)
Quarter: 2007Q4

REPORT INFORMATION
  Report Type: 
  Country: None (occurrence: None)
  Receive Date: 20071005
  Receipt Date: 20070723
  Transmission Date: 20080405
  Serious: No
  Sender: FDA-Public Use
  Company Number: PHEH2007US08733

PATIENT
  Age: 83 Year
  Sex: Female
  Weight: 60.8 kg

DRUGS (12)
  1. TEKTURNA [Suspect]
     Indication: HYPERTENSION
     Dosage: 150 MG, QD, ORAL
     Route: 048
     Dates: start: 20070614
  2. OLMESARTAN (OLMESARTAN) [Concomitant]
  3. HYDROCHLOROTHIAZIDE [Concomitant]
  4. METOPROLOL TARTRATE [Concomitant]
  5. CLONIDINE [Concomitant]
  6. NORVASC [Concomitant]
  7. ASPIRIN [Concomitant]
  8. FUROSEMIDE [Concomitant]
  9. OMEPRAZOLE [Concomitant]
  10. PRAVASTATIN [Concomitant]
  11. PROPOXYPHENE NAPSYLATE W/ACETAMINOPHENE (DEXTROPROPOXYPHENE NAPSILATE, [Concomitant]
  12. TEMAZEPAM [Concomitant]

REACTIONS (3)
  - HEADACHE [None]
  - MUSCLE SPASMS [None]
  - MYALGIA [None]
